FAERS Safety Report 24352080 (Version 1)
Quarter: 2024Q3

REPORT INFORMATION
  Report Type: Report from Study
  Country: EG (occurrence: EG)
  Receive Date: 20240923
  Receipt Date: 20240923
  Transmission Date: 20241017
  Serious: No
  Sender: ROCHE
  Company Number: EG-ROCHE-3071470

PATIENT
  Age: 60 Year
  Sex: Female

DRUGS (11)
  1. TRASTUZUMAB [Suspect]
     Active Substance: TRASTUZUMAB
     Indication: Breast cancer metastatic
     Route: 058
     Dates: start: 20190707
  2. CAPECITABINE [Suspect]
     Active Substance: CAPECITABINE
     Indication: Breast cancer metastatic
     Dosage: TWICE DAILY FOR 14 DAYS EVERY 21 DAYS
     Route: 048
     Dates: start: 20200129
  3. PACLITAXEL [Suspect]
     Active Substance: PACLITAXEL
     Indication: Breast cancer metastatic
     Route: 042
     Dates: start: 20190707, end: 20200101
  4. CYCLOPHOSPHAMIDE [Suspect]
     Active Substance: CYCLOPHOSPHAMIDE
     Indication: Breast cancer metastatic
     Dosage: FREQUENCY TEXT:DAY 1 AND DAY 8 EVERY 3 WEEKS
     Route: 042
     Dates: start: 20190707, end: 20200101
  5. VITAMIN B6 [Concomitant]
     Active Substance: PYRIDOXINE HYDROCHLORIDE
     Indication: Palmar-plantar erythrodysaesthesia syndrome
     Dosage: 1 TABLET
     Route: 048
     Dates: start: 20210725, end: 20210731
  6. OLIVE OIL [Concomitant]
     Active Substance: OLIVE OIL
     Indication: Palmar-plantar erythrodysaesthesia syndrome
     Route: 061
     Dates: start: 20201221, end: 20210104
  7. VITAMIN B1 [Concomitant]
     Active Substance: THIAMINE HYDROCHLORIDE
     Indication: Palmar-plantar erythrodysaesthesia syndrome
     Dosage: 1 TABLET
     Route: 048
     Dates: start: 20210725, end: 20210731
  8. ZINC OXIDE [Concomitant]
     Active Substance: ZINC OXIDE
     Indication: Palmar-plantar erythrodysaesthesia syndrome
     Route: 061
     Dates: start: 20201221, end: 20210104
  9. VITAMIN B1 [Concomitant]
     Active Substance: THIAMINE HYDROCHLORIDE
     Indication: Neuropathy peripheral
     Route: 030
     Dates: start: 20220302
  10. VITAMIN B6 [Concomitant]
     Active Substance: PYRIDOXINE HYDROCHLORIDE
     Indication: Neuropathy peripheral
     Route: 030
     Dates: start: 20220302
  11. GABAPENTIN [Concomitant]
     Active Substance: GABAPENTIN
     Indication: Palmar-plantar erythrodysaesthesia syndrome
     Route: 048
     Dates: start: 20230321, end: 20230411

REACTIONS (1)
  - Neuropathy peripheral [Unknown]

NARRATIVE: CASE EVENT DATE: 20220302
